FAERS Safety Report 21664255 (Version 1)
Quarter: 2022Q4

REPORT INFORMATION
  Report Type: Spontaneous
  Country: US (occurrence: None)
  Receive Date: 20221129
  Receipt Date: 20221129
  Transmission Date: 20230113
  Serious: Yes (Hospitalization)
  Sender: FDA-Public Use
  Company Number: None

PATIENT
  Sex: Male

DRUGS (1)
  1. NUBEQA [Suspect]
     Active Substance: DAROLUTAMIDE
     Indication: Metastases to reproductive organ
     Dosage: FREQUENCY : TWICE A DAY;?
     Route: 048
     Dates: start: 202210

REACTIONS (4)
  - Dizziness [None]
  - Loss of consciousness [None]
  - Acute kidney injury [None]
  - Fatigue [None]
